FAERS Safety Report 21268865 (Version 5)
Quarter: 2022Q4

REPORT INFORMATION
  Report Type: Spontaneous
  Country: CA (occurrence: CA)
  Receive Date: 20220830
  Receipt Date: 20221210
  Transmission Date: 20230113
  Serious: Yes (Other)
  Sender: FDA-Public Use
  Company Number: CA-CELLTRION INC.-2022CA010589

PATIENT

DRUGS (5)
  1. INFLECTRA [Suspect]
     Active Substance: INFLIXIMAB-DYYB
     Indication: Crohn^s disease
     Dosage: 700 MG, RE-INDUCTION WEEK 0,2,6 THEN EVERY 4 WEEKS
     Route: 042
  2. INFLECTRA [Suspect]
     Active Substance: INFLIXIMAB-DYYB
     Dosage: 700 MG, EVERY 4 WEEKS. RE-INDUCTION WEEK 0,2,6 THEN Q 4 WEEKS
     Route: 042
     Dates: start: 20220627
  3. INFLECTRA [Suspect]
     Active Substance: INFLIXIMAB-DYYB
     Dosage: 700 MG, EVERY 4 WEEKS. RE-INDUCTION WEEK 0,2,6 THEN Q 4 WEEKS
     Route: 042
     Dates: start: 20220713
  4. INFLECTRA [Suspect]
     Active Substance: INFLIXIMAB-DYYB
     Dosage: 700 MG, EVERY 4 WEEKS. RE-INDUCTION WEEK 0,2,6 THEN Q 4 WEEKS
     Route: 042
     Dates: start: 20220811
  5. INFLECTRA [Suspect]
     Active Substance: INFLIXIMAB-DYYB
     Dosage: 700 MG, EVERY 4 WEEKS. RE-INDUCTION WEEK 0,2,6 THEN Q 4 WEEKS
     Route: 042
     Dates: start: 20221006, end: 20221006

REACTIONS (24)
  - Syncope [Unknown]
  - Therapeutic product effect incomplete [Unknown]
  - Off label use [Unknown]
  - Off label use [Unknown]
  - Off label use [Unknown]
  - Intentional product use issue [Unknown]
  - Condition aggravated [Unknown]
  - COVID-19 [Recovered/Resolved]
  - Condition aggravated [Recovered/Resolved]
  - Faeces discoloured [Unknown]
  - Inappropriate schedule of product administration [Unknown]
  - Abdominal distension [Not Recovered/Not Resolved]
  - Skin striae [Not Recovered/Not Resolved]
  - Feeding disorder [Not Recovered/Not Resolved]
  - Constipation [Recovered/Resolved]
  - Abdominal pain upper [Unknown]
  - Swelling [Unknown]
  - Neck pain [Unknown]
  - Hunger [Unknown]
  - Dyschezia [Unknown]
  - Abnormal faeces [Unknown]
  - Pain [Not Recovered/Not Resolved]
  - Malaise [Unknown]
  - Abdominal pain upper [Unknown]

NARRATIVE: CASE EVENT DATE: 20190101
